FAERS Safety Report 5127617-3 (Version None)
Quarter: 2006Q4

REPORT INFORMATION
  Report Type: 
  Country: None (occurrence: None)
  Receive Date: 20061011
  Receipt Date: 20060927
  Transmission Date: 20070319
  Serious: Yes (Hospitalization)
  Sender: FDA-Public Use
  Company Number: 2006RR-03930

PATIENT
  Age: 78 Year
  Sex: Male

DRUGS (8)
  1. FUROSEMIDE [Suspect]
     Dosage: 40 MG, ORAL
     Route: 048
     Dates: end: 20060713
  2. LISINOPRIL [Suspect]
     Indication: HYPERTENSION
     Dosage: 10 MG, ORAL
     Route: 048
     Dates: end: 20060713
  3. SPIRONOLACTONE                    (SPIRONOLACTONE) TABLET [Suspect]
     Dosage: 50 MG, ORAL
     Route: 048
     Dates: end: 20060713
  4. DIGOXIN [Suspect]
     Dosage: 125 MG, ORAL
     Route: 048
     Dates: end: 20060713
  5. DOXAZOSIN (DOXAZOSIN) [Concomitant]
  6. SERETIDE [Concomitant]
  7. SIMVASTATIN [Concomitant]
  8. WARFARIN SODIUM [Concomitant]

REACTIONS (3)
  - BLOOD ELECTROLYTES ABNORMAL [None]
  - BLOOD UREA ABNORMAL [None]
  - HYPERKALAEMIA [None]
